FAERS Safety Report 5454451-7 (Version None)
Quarter: 2007Q3

REPORT INFORMATION
  Report Type: 
  Country: None (occurrence: None)
  Receive Date: 20070917
  Receipt Date: 20060928
  Transmission Date: 20080115
  Serious: No
  Sender: FDA-Public Use
  Company Number: US-ASTRAZENECA-2006UW18938

PATIENT
  Age: 52 Year
  Sex: Male
  Weight: 88.5 kg

DRUGS (2)
  1. SEROQUEL [Suspect]
     Indication: BIPOLAR DISORDER
     Route: 048
     Dates: end: 20060901
  2. PROZAC [Concomitant]

REACTIONS (5)
  - ABDOMINAL PAIN [None]
  - BOWEL MOVEMENT IRREGULARITY [None]
  - DECREASED APPETITE [None]
  - DIVERTICULITIS [None]
  - DYSPEPSIA [None]
